FAERS Safety Report 22035056 (Version 6)
Quarter: 2023Q1

REPORT INFORMATION
  Report Type: Report from Study
  Country: US (occurrence: None)
  Receive Date: 20230224
  Receipt Date: 20230331
  Transmission Date: 20230418
  Serious: Yes (Hospitalization)
  Sender: FDA-Public Use
  Company Number: US-ROCHE-3288971

PATIENT
  Age: 63 Year
  Sex: Female
  Weight: 86.6 kg

DRUGS (5)
  1. MOSUNETUZUMAB [Suspect]
     Active Substance: MOSUNETUZUMAB
     Indication: Acute lymphocytic leukaemia
     Dosage: DOSE LAST STUDY DRUG MOSUNETUZUMAB ADMIN PRIOR AE/SAE WAS 30 MG?ON 24/JAN/2023 AT 2:56 PM-7:04 PM, M
     Route: 042
     Dates: start: 20221004
  2. LENALIDOMIDE [Suspect]
     Active Substance: LENALIDOMIDE
     Indication: Acute lymphocytic leukaemia
     Dosage: DOSE LAST STUDY DRUG LENALIDOMIDE ADMIN PRIOR AE/SAE WAS 20 MG?ON 14/FEB/2023, MOST RECENT DOSE OF S
     Route: 048
     Dates: start: 20221025
  3. ASTELIN [Concomitant]
     Active Substance: AZELASTINE HYDROCHLORIDE
     Indication: Rhinitis allergic
     Route: 045
     Dates: start: 20210921
  4. VITAMIN D2 [Concomitant]
     Active Substance: ERGOCALCIFEROL
     Indication: Prophylaxis
     Route: 048
     Dates: start: 20211221
  5. LEVOTHYROXINE [Concomitant]
     Active Substance: LEVOTHYROXINE
     Indication: Hypothyroidism
     Route: 048
     Dates: start: 20220809

REACTIONS (1)
  - Pneumonia [Recovered/Resolved]

NARRATIVE: CASE EVENT DATE: 20230215
